FAERS Safety Report 8151166-1 (Version None)
Quarter: 2012Q1

REPORT INFORMATION
  Report Type: 
  Country: None (occurrence: None)
  Receive Date: 20120220
  Receipt Date: 20110518
  Transmission Date: 20120608
  Serious: Yes (Hospitalization, Other)
  Sender: FDA-Public Use
  Company Number: BR-GLAXOSMITHKLINE-B0781819A

PATIENT
  Sex: Female
  Weight: 90 kg

DRUGS (5)
  1. PROPAFENONE HCL [Suspect]
     Indication: ARRHYTHMIA
     Dosage: 300MG PER DAY
     Route: 048
  2. LEVOTHYROXINE SODIUM [Concomitant]
     Dosage: 12.5MCG PER DAY
     Route: 048
  3. TRIIODOTHYRONINE [Concomitant]
     Dosage: 10MG PER DAY
     Route: 048
  4. RAMIPRIL [Concomitant]
  5. HYDROCORTISONE [Concomitant]
     Indication: HERPES VIRUS INFECTION
     Dosage: 20MG PER DAY
     Route: 048

REACTIONS (4)
  - FAECES HARD [None]
  - EYE DISCHARGE [None]
  - HAEMATOCHEZIA [None]
  - GASTROINTESTINAL CARCINOMA [None]
